FAERS Safety Report 24739261 (Version 1)
Quarter: 2024Q4

REPORT INFORMATION
  Report Type: Spontaneous
  Country: GB (occurrence: GB)
  Receive Date: 20241216
  Receipt Date: 20241216
  Transmission Date: 20250115
  Serious: Yes (Other)
  Sender: SANDOZ
  Company Number: None

PATIENT
  Age: 66 Year
  Sex: Male
  Weight: 73 kg

DRUGS (6)
  1. EZETIMIBE [Suspect]
     Active Substance: EZETIMIBE
     Indication: Ill-defined disorder
     Dosage: UNK
     Route: 065
     Dates: start: 20241213
  2. ASPIRIN [Concomitant]
     Active Substance: ASPIRIN
     Indication: Ill-defined disorder
     Dosage: 1 DF, QD, ONE TABLET DAILY WITH FOOD (ANTI-CLOTTING)
     Route: 065
     Dates: start: 20240723
  3. ATORVASTATIN [Concomitant]
     Active Substance: ATORVASTATIN
     Indication: Ill-defined disorder
     Dosage: 1 DF, QD
     Route: 065
     Dates: start: 20240723
  4. CANDESARTAN [Concomitant]
     Active Substance: CANDESARTAN
     Indication: Ill-defined disorder
     Dosage: 1 DF, QD
     Route: 065
     Dates: start: 20240723
  5. EZETIMIBE [Concomitant]
     Active Substance: EZETIMIBE
     Indication: Ill-defined disorder
     Dosage: 1 DF, QD, ONE TABLET DAILY (TO LOWER CHOLESTEROL)
     Route: 065
     Dates: start: 20240723
  6. LANSOPRAZOLE [Concomitant]
     Active Substance: LANSOPRAZOLE
     Indication: Ill-defined disorder
     Dosage: 1 DF, QD, ONE CAPSULE DAILY (TO REDUCE ACID IN STOMACH)
     Route: 065
     Dates: start: 20240723

REACTIONS (1)
  - Muscle spasms [Recovered/Resolved]

NARRATIVE: CASE EVENT DATE: 20241213
